FAERS Safety Report 7261207-1 (Version None)
Quarter: 2011Q1

REPORT INFORMATION
  Report Type: 
  Country: None (occurrence: None)
  Receive Date: 20110130
  Receipt Date: 20100929
  Transmission Date: 20110831
  Serious: No
  Sender: FDA-Public Use
  Company Number: US-ABBOTT-10P-163-0674316-00

PATIENT
  Age: 58 Year
  Sex: Female

DRUGS (22)
  1. FENTANYL [Concomitant]
     Indication: BREAKTHROUGH PAIN
  2. VITAMIN D [Concomitant]
     Indication: PRODUCT USED FOR UNKNOWN INDICATION
     Dosage: DAILY
  3. IMITREX [Concomitant]
     Indication: MIGRAINE
  4. FOLIC ACID [Concomitant]
     Indication: VITAMIN SUPPLEMENTATION
  5. NEXIUM [Concomitant]
     Indication: GASTROOESOPHAGEAL REFLUX DISEASE
  6. VITAMIN B-12 [Concomitant]
     Indication: VITAMIN SUPPLEMENTATION
     Route: 050
  7. BIOTIN [Concomitant]
     Indication: NAUSEA
  8. BIOTIN [Concomitant]
     Indication: VOMITING
  9. AYGESTIN [Concomitant]
     Indication: HORMONE REPLACEMENT THERAPY
  10. RECLAST [Concomitant]
     Indication: OSTEOPOROSIS
     Route: 042
  11. TRAZODONE [Concomitant]
     Indication: INSOMNIA
     Dosage: BEDTIME
  12. VITAMIN B [Concomitant]
     Indication: PRODUCT USED FOR UNKNOWN INDICATION
  13. BUPROPION SR [Concomitant]
     Indication: BIPOLAR DISORDER
  14. HYZAAR [Concomitant]
     Indication: HYPERTENSION
     Dosage: 100/25MG
  15. NIFEDICAL [Concomitant]
     Indication: RAYNAUD'S PHENOMENON
  16. LAMOTIL [Concomitant]
     Indication: DIARRHOEA
  17. VICODIN/PERCOCET [Concomitant]
     Indication: BREAKTHROUGH PAIN
  18. PREDNISONE [Concomitant]
     Indication: CROHN'S DISEASE
     Dosage: DAILY
  19. LAMICTAL [Concomitant]
     Indication: BIPOLAR DISORDER
  20. ASCORBIC ACID [Concomitant]
     Indication: PRODUCT USED FOR UNKNOWN INDICATION
  21. HUMIRA [Suspect]
     Indication: CROHN'S DISEASE
     Dosage: 160MG LOADING DOSE
     Dates: start: 20100920
  22. ESTRIDOL [Concomitant]
     Indication: HORMONE REPLACEMENT THERAPY

REACTIONS (3)
  - INJECTION SITE HAEMATOMA [None]
  - INJECTION SITE PAIN [None]
  - CANDIDIASIS [None]
